FAERS Safety Report 6709559-2 (Version None)
Quarter: 2010Q2

REPORT INFORMATION
  Report Type: 
  Country: None (occurrence: None)
  Receive Date: 20100503
  Receipt Date: 20100503
  Transmission Date: 20101027
  Serious: Yes (Other)
  Sender: FDA-Public Use
  Company Number: None

PATIENT

DRUGS (2)
  1. BUPIVACAINE HCL [Suspect]
     Indication: CAESAREAN SECTION
     Dates: start: 20100410, end: 20100421
  2. BUPIVACAINE HCL [Suspect]

REACTIONS (3)
  - DRUG EFFECT DECREASED [None]
  - PRODUCT MEASURED POTENCY ISSUE [None]
  - PRODUCT SUBSTITUTION ISSUE [None]
